FAERS Safety Report 19266567 (Version 1)
Quarter: 2021Q2

REPORT INFORMATION
  Report Type: Spontaneous
  Country: US (occurrence: US)
  Receive Date: 20210518
  Receipt Date: 20210518
  Transmission Date: 20210717
  Serious: No
  Sender: FDA-Public Use
  Company Number: US-SA-2021SA163251

PATIENT
  Sex: Male

DRUGS (4)
  1. LISINOPRIL. [Concomitant]
     Active Substance: LISINOPRIL
     Dosage: 40 MG
  2. HYDROCHLOROTH [Concomitant]
     Active Substance: HYDROCHLOROTHIAZIDE
     Dosage: 50 MG
  3. POTASSIUM [Concomitant]
     Active Substance: POTASSIUM
     Dosage: 20 MEQ
  4. DUPIXENT [Suspect]
     Active Substance: DUPILUMAB
     Indication: DERMATITIS ALLERGIC
     Dosage: 300 MG
     Route: 058

REACTIONS (5)
  - Pruritus [Unknown]
  - Product use in unapproved indication [Unknown]
  - Dermatitis atopic [Unknown]
  - Skin weeping [Unknown]
  - Rash [Unknown]
